FAERS Safety Report 12260938 (Version 1)
Quarter: 2016Q2

REPORT INFORMATION
  Report Type: Spontaneous
  Country: US (occurrence: None)
  Receive Date: 20160412
  Receipt Date: 20160412
  Transmission Date: 20160815
  Serious: No
  Sender: FDA-Public Use
  Company Number: None

PATIENT
  Age: 63 Year
  Sex: Female
  Weight: 98.9 kg

DRUGS (2)
  1. CARFILZOMIB [Suspect]
     Active Substance: CARFILZOMIB
     Dosage: 27MG/M2 ON DAYS 1,2,8,9,15,16
  2. DEXA [Suspect]
     Active Substance: DEXAMETHASONE
     Dosage: 20MG ON DAYS 1,2,8,9,125,16

REACTIONS (7)
  - Tachycardia [None]
  - Musculoskeletal chest pain [None]
  - Catheter site erythema [None]
  - Purulent discharge [None]
  - Neck pain [None]
  - Pyrexia [None]
  - Musculoskeletal pain [None]

NARRATIVE: CASE EVENT DATE: 20160411
